FAERS Safety Report 5486328-5 (Version None)
Quarter: 2007Q4

REPORT INFORMATION
  Report Type: 
  Country: None (occurrence: None)
  Receive Date: 20071016
  Receipt Date: 20071009
  Transmission Date: 20080405
  Serious: Yes (Other)
  Sender: FDA-Public Use
  Company Number: NO-ASTRAZENECA-2007SE05429

PATIENT
  Sex: Male

DRUGS (4)
  1. SELO-ZOK [Suspect]
  2. CELEBRA [Suspect]
  3. SAROTEX [Suspect]
  4. VIOXX [Suspect]

REACTIONS (10)
  - ANGINA UNSTABLE [None]
  - BRONCHIAL HYPERREACTIVITY [None]
  - CARDIAC DISORDER [None]
  - CORONARY ARTERY STENOSIS [None]
  - DYSPNOEA [None]
  - HEART RATE INCREASED [None]
  - HYPERTENSION [None]
  - INCREASED VISCOSITY OF BRONCHIAL SECRETION [None]
  - MYOCARDIAL ISCHAEMIA [None]
  - SALIVA ALTERED [None]
